FAERS Safety Report 6923139-5 (Version None)
Quarter: 2010Q3

REPORT INFORMATION
  Report Type: 
  Country: None (occurrence: None)
  Receive Date: 20100813
  Receipt Date: 20100810
  Transmission Date: 20110219
  Serious: Yes (Other)
  Sender: FDA-Public Use
  Company Number: US-TEVA-243759USA

PATIENT
  Sex: Female
  Weight: 61.29 kg

DRUGS (2)
  1. PLAN B ONE-STEP [Suspect]
     Indication: POST COITAL CONTRACEPTION
     Route: 048
     Dates: start: 20100210, end: 20100210
  2. PLAN B ONE-STEP [Suspect]
     Route: 048
     Dates: start: 20100729, end: 20100729

REACTIONS (6)
  - ABORTION SPONTANEOUS [None]
  - DRUG INEFFECTIVE [None]
  - PELVIC PAIN [None]
  - PREGNANCY AFTER POST COITAL CONTRACEPTION [None]
  - VAGINAL DISCHARGE [None]
  - VAGINAL HAEMORRHAGE [None]
